FAERS Safety Report 8043182-5 (Version None)
Quarter: 2012Q1

REPORT INFORMATION
  Report Type: 
  Country: None (occurrence: None)
  Receive Date: 20120112
  Receipt Date: 20120109
  Transmission Date: 20120608
  Serious: Yes (Hospitalization)
  Sender: FDA-Public Use
  Company Number: NL-ABBOTT-12P-114-0889621-00

PATIENT
  Sex: Male
  Weight: 65 kg

DRUGS (5)
  1. LEUPROLIDE ACETATE [Suspect]
     Indication: PROSTATE CANCER
     Route: 058
     Dates: start: 20100101
  2. PANTOPRAZOLE [Concomitant]
     Indication: PROPHYLAXIS
     Dates: start: 20111224
  3. PANTOPRAZOLE [Concomitant]
     Indication: GASTRIC DISORDER
  4. LANOXIN [Concomitant]
     Indication: ARRHYTHMIA
     Dates: start: 20111224
  5. METOPROLOL [Concomitant]
     Indication: ARRHYTHMIA
     Dates: start: 20111224

REACTIONS (1)
  - ARRHYTHMIA [None]
